FAERS Safety Report 12922194 (Version 1)
Quarter: 2016Q4

REPORT INFORMATION
  Report Type: Report from Study
  Country: FR (occurrence: FR)
  Receive Date: 20161108
  Receipt Date: 20161108
  Transmission Date: 20170207
  Serious: Yes (Life-Threatening, Hospitalization, Other)
  Sender: FDA-Public Use
  Company Number: FR-SEATTLE GENETICS-2016SGN01580

PATIENT

DRUGS (3)
  1. BRENTUXIMAB VEDOTIN [Suspect]
     Active Substance: BRENTUXIMAB VEDOTIN
     Indication: MYCOSIS FUNGOIDES
     Dosage: 148 MG, UNK
     Route: 042
     Dates: start: 20160927
  2. BRENTUXIMAB VEDOTIN [Suspect]
     Active Substance: BRENTUXIMAB VEDOTIN
     Dosage: 98 MG, UNK
     Route: 042
     Dates: start: 20161018, end: 20161018
  3. BENDAMUSTINE HYDROCHLORIDE. [Suspect]
     Active Substance: BENDAMUSTINE HYDROCHLORIDE
     Indication: MYCOSIS FUNGOIDES
     Dosage: 178 MG, BID
     Route: 042
     Dates: start: 20160927, end: 20161018

REACTIONS (8)
  - Off label use [Unknown]
  - Anaphylactic shock [Recovered/Resolved]
  - Hypotension [Recovered/Resolved]
  - No adverse event [Unknown]
  - Hyperthermia [Recovered/Resolved]
  - Abdominal pain [Recovered/Resolved]
  - Nausea [Recovered/Resolved]
  - Diarrhoea [Recovered/Resolved]

NARRATIVE: CASE EVENT DATE: 201610
